FAERS Safety Report 4689274-X (Version None)
Quarter: 2005Q2

REPORT INFORMATION
  Report Type: 
  Country: None (occurrence: None)
  Receive Date: 20050613
  Receipt Date: 20050311
  Transmission Date: 20051028
  Serious: Yes (Hospitalization, Disabling)
  Sender: FDA-Public Use
  Company Number: US-MERCK-0503USA02663

PATIENT
  Age: 53 Year
  Sex: Male
  Weight: 102 kg

DRUGS (12)
  1. VIOXX [Suspect]
     Indication: SPONDYLITIS
     Route: 048
     Dates: start: 20030101, end: 20030101
  2. VIOXX [Suspect]
     Route: 048
     Dates: end: 20040901
  3. ISOSORBIDE [Concomitant]
     Route: 065
  4. TOPROL-XL [Concomitant]
     Route: 065
  5. ZOCOR [Concomitant]
     Route: 065
  6. WELLBUTRIN SR [Concomitant]
     Route: 065
  7. NORVASC [Concomitant]
     Route: 065
  8. PAXIL [Concomitant]
     Route: 065
  9. ATENOLOL [Concomitant]
     Route: 065
  10. NITROQUICK [Concomitant]
     Route: 065
  11. PRAVACHOL [Concomitant]
     Route: 065
  12. ASPIRIN [Concomitant]
     Route: 065

REACTIONS (34)
  - ABDOMINAL PAIN UPPER [None]
  - ANGINA PECTORIS [None]
  - ANGINA UNSTABLE [None]
  - ANXIETY [None]
  - ARTHROPATHY [None]
  - BRADYCARDIA [None]
  - CELLULITIS [None]
  - CERVICAL SPINAL STENOSIS [None]
  - CERVICOBRACHIAL SYNDROME [None]
  - CHEST PAIN [None]
  - CORONARY ARTERY DISEASE [None]
  - CORONARY ARTERY STENOSIS [None]
  - EMOTIONAL DISTRESS [None]
  - GASTRIC DISORDER [None]
  - GASTRITIS [None]
  - GASTROOESOPHAGEAL REFLUX DISEASE [None]
  - HYPERTENSION [None]
  - INTERVERTEBRAL DISC SPACE NARROWING [None]
  - INTRACARDIAC THROMBUS [None]
  - LIPOMA [None]
  - MASS [None]
  - MUSCULOSKELETAL PAIN [None]
  - MYALGIA [None]
  - MYELOPATHY [None]
  - MYOCARDIAL INFARCTION [None]
  - MYOCARDIAL ISCHAEMIA [None]
  - PAIN IN EXTREMITY [None]
  - SHOULDER PAIN [None]
  - SLEEP APNOEA SYNDROME [None]
  - SPINAL OSTEOARTHRITIS [None]
  - TACHYCARDIA [None]
  - THROMBOSIS IN DEVICE [None]
  - UPPER RESPIRATORY TRACT INFECTION [None]
  - WEIGHT INCREASED [None]
